FAERS Safety Report 21499393 (Version 1)
Quarter: 2022Q4

REPORT INFORMATION
  Report Type: Report from Study
  Country: US (occurrence: US)
  Receive Date: 20221024
  Receipt Date: 20221024
  Transmission Date: 20230113
  Serious: Yes (Other)
  Sender: FDA-Public Use
  Company Number: US-BAYER-2022A142081

PATIENT
  Age: 11 Year
  Sex: Female

DRUGS (2)
  1. SORAFENIB [Suspect]
     Active Substance: SORAFENIB
     Indication: Myelodysplastic syndrome
     Dosage: 200 MG, QD (DAYS 8 TO 28 EVERY 28 DAYS)
  2. AZATADINE [Concomitant]
     Active Substance: AZATADINE
     Dosage: 100 MG, QD (100 MG/M2 DAILY ON DAYS 1)

REACTIONS (2)
  - Pancytopenia [Recovering/Resolving]
  - Off label use [None]
